FAERS Safety Report 5009067-3 (Version None)
Quarter: 2006Q2

REPORT INFORMATION
  Report Type: 
  Country: None (occurrence: None)
  Receive Date: 20060519
  Receipt Date: 20060511
  Transmission Date: 20061013
  Serious: Yes (Hospitalization)
  Sender: FDA-Public Use
  Company Number: 2006BI003686

PATIENT
  Sex: Female

DRUGS (2)
  1. AVONEX [Suspect]
     Indication: MULTIPLE SCLEROSIS
     Dosage: 30 UG; QW; IM
     Route: 030
  2. STEROIDS [Concomitant]

REACTIONS (5)
  - FALL [None]
  - JOINT INJURY [None]
  - LACERATION [None]
  - OSTEONECROSIS [None]
  - POST PROCEDURAL COMPLICATION [None]
